FAERS Safety Report 5661682-X (Version None)
Quarter: 2008Q1

REPORT INFORMATION
  Report Type: 
  Country: None (occurrence: None)
  Receive Date: 20080312
  Receipt Date: 20080312
  Transmission Date: 20080703
  Serious: Yes (Other)
  Sender: FDA-Public Use
  Company Number: A0714872A

PATIENT
  Age: 77 Year
  Sex: Female

DRUGS (1)
  1. NICODERM CQ [Suspect]
     Indication: SMOKING CESSATION THERAPY
     Route: 062
     Dates: start: 20080304, end: 20080308

REACTIONS (3)
  - APPLICATION SITE ERYTHEMA [None]
  - DIZZINESS [None]
  - LOSS OF CONSCIOUSNESS [None]
